FAERS Safety Report 4587938-X (Version None)
Quarter: 2005Q1

REPORT INFORMATION
  Report Type: 
  Country: None (occurrence: None)
  Receive Date: 20050215
  Receipt Date: 20050202
  Transmission Date: 20050727
  Serious: Yes (Hospitalization, Other)
  Sender: FDA-Public Use
  Company Number: 2005025383

PATIENT
  Age: 49 Year
  Sex: Male
  Weight: 92.9874 kg

DRUGS (1)
  1. CELEBREX [Suspect]
     Indication: ARTHROPATHY
     Dosage: ORAL
     Route: 048
     Dates: start: 20040101, end: 20040922

REACTIONS (6)
  - GASTRITIS [None]
  - INJURY [None]
  - INTRA-ABDOMINAL HAEMORRHAGE [None]
  - PAIN [None]
  - PEPTIC ULCER [None]
  - VICTIM OF CRIME [None]
